FAERS Safety Report 5619183-0 (Version None)
Quarter: 2008Q1

REPORT INFORMATION
  Report Type: 
  Country: None (occurrence: None)
  Receive Date: 20080207
  Receipt Date: 20080129
  Transmission Date: 20080703
  Serious: Yes (Death, Hospitalization, Other)
  Sender: FDA-Public Use
  Company Number: US-MERCK-0701USA00575

PATIENT
  Age: 55 Year
  Sex: Female

DRUGS (7)
  1. FOSAMAX [Suspect]
     Indication: OSTEOPOROSIS
     Route: 048
  2. FOSAMAX [Suspect]
     Route: 048
     Dates: start: 19970401
  3. FOSAMAX [Suspect]
     Route: 048
     Dates: end: 20011201
  4. CELEXA [Concomitant]
     Indication: DEPRESSION
     Route: 065
  5. DITROPAN [Concomitant]
     Route: 065
  6. RITALIN [Concomitant]
     Route: 065
  7. PRILOSEC [Concomitant]
     Route: 065

REACTIONS (24)
  - CHEST PAIN [None]
  - COUGH [None]
  - DEATH [None]
  - DEEP VEIN THROMBOSIS [None]
  - DRUG INEFFECTIVE [None]
  - DYSURIA [None]
  - FALL [None]
  - FIBULA FRACTURE [None]
  - HAEMATURIA [None]
  - HAND FRACTURE [None]
  - HIATUS HERNIA [None]
  - JOINT SPRAIN [None]
  - MUSCULOSKELETAL PAIN [None]
  - OSTEOMYELITIS [None]
  - OSTEONECROSIS [None]
  - OVARIAN CANCER [None]
  - PARANASAL SINUS HYPERSECRETION [None]
  - PHLEBITIS [None]
  - POLLAKIURIA [None]
  - PULMONARY EMBOLISM [None]
  - SUPRAVENTRICULAR EXTRASYSTOLES [None]
  - SYRINGOMYELIA [None]
  - TACHYCARDIA [None]
  - TIBIA FRACTURE [None]
